FAERS Safety Report 15212955 (Version 2)
Quarter: 2018Q3

REPORT INFORMATION
  Report Type: Spontaneous
  Country: ES (occurrence: ES)
  Receive Date: 20180730
  Receipt Date: 20180806
  Transmission Date: 20181010
  Serious: Yes (Other)
  Sender: FDA-Public Use
  Company Number: ES-ROCHE-2160410

PATIENT
  Age: 36 Year
  Sex: Male
  Weight: 68 kg

DRUGS (3)
  1. CETIRIZINA [Concomitant]
     Active Substance: CETIRIZINE HYDROCHLORIDE
     Indication: CHRONIC SPONTANEOUS URTICARIA
     Route: 065
  2. ATARAX [Concomitant]
     Active Substance: HYDROXYZINE HYDROCHLORIDE
     Indication: URTICARIA CHRONIC
     Route: 065
  3. XOLAIR [Suspect]
     Active Substance: OMALIZUMAB
     Indication: CHRONIC SPONTANEOUS URTICARIA
     Route: 058
     Dates: start: 20160601, end: 20170731

REACTIONS (2)
  - Dysplastic naevus [Not Recovered/Not Resolved]
  - Alopecia [Recovered/Resolved with Sequelae]

NARRATIVE: CASE EVENT DATE: 20160901
